FAERS Safety Report 6730013-6 (Version None)
Quarter: 2010Q2

REPORT INFORMATION
  Report Type: 
  Country: None (occurrence: None)
  Receive Date: 20100518
  Receipt Date: 20100506
  Transmission Date: 20101027
  Serious: Yes (Hospitalization)
  Sender: FDA-Public Use
  Company Number: -ASTRAZENECA-2010SE20888

PATIENT
  Age: 22315 Day
  Sex: Male
  Weight: 69.3 kg

DRUGS (13)
  1. LISINOPRIL HYDROCHLORTHIAZID [Suspect]
     Indication: HYPERTENSION
     Route: 048
     Dates: start: 20090310, end: 20090612
  2. FOSTAMATINIB DISODIUM [Suspect]
     Indication: RHEUMATOID ARTHRITIS
     Route: 048
     Dates: start: 20090126
  3. AMLODIPINE [Concomitant]
     Indication: HYPERTENSION
     Route: 048
     Dates: start: 20010204
  4. ATENOLOL [Concomitant]
     Indication: HYPERTENSION
     Route: 048
     Dates: start: 20010204
  5. METHOTREXATE [Concomitant]
     Indication: RHEUMATOID ARTHRITIS
     Dates: start: 20010315
  6. FOLIC ACID [Concomitant]
     Indication: MEDICAL DIET
     Route: 048
     Dates: start: 20010315
  7. SIMVASTATIN [Concomitant]
     Indication: BLOOD CHOLESTEROL INCREASED
     Route: 048
     Dates: start: 20060101
  8. COLESTIPOL HYDROCHLORIDE [Concomitant]
     Indication: BLOOD CHOLESTEROL INCREASED
     Route: 048
     Dates: start: 20010101
  9. ACTONEL [Concomitant]
     Indication: OSTEOPOROSIS
     Dates: start: 20011001
  10. PLAVIX [Concomitant]
     Indication: ANTICOAGULANT THERAPY
     Route: 048
     Dates: start: 20081030
  11. METOPROLOL TARTRATE [Concomitant]
     Indication: ARRHYTHMIA
     Route: 048
     Dates: start: 20081030
  12. SKELAXIN [Concomitant]
     Indication: MUSCLE RELAXANT THERAPY
     Route: 048
     Dates: start: 20081112
  13. ASPIRIN [Concomitant]
     Indication: CARDIOVASCULAR EVENT PROPHYLAXIS
     Route: 048
     Dates: start: 20090310

REACTIONS (1)
  - MUSCULOSKELETAL CHEST PAIN [None]
